FAERS Safety Report 6265349-9 (Version None)
Quarter: 2009Q3

REPORT INFORMATION
  Report Type: 
  Country: None (occurrence: None)
  Receive Date: 20090713
  Receipt Date: 20090709
  Transmission Date: 20100115
  Serious: Yes (Hospitalization)
  Sender: FDA-Public Use
  Company Number: JP-AMGEN-US352088

PATIENT
  Sex: Male
  Weight: 93.1 kg

DRUGS (7)
  1. ETANERCEPT [Suspect]
     Indication: RHEUMATOID ARTHRITIS
     Dosage: TWICE WEEKLY SQ INJECTIONS/ WEEKLY PO CAPSULES IN 2 OR 3 DIVIDED DOSES SEPARATED BY 12 HOURS
     Dates: start: 20090305, end: 20090525
  2. FELBINAC [Concomitant]
     Indication: RHEUMATOID ARTHRITIS
     Dosage: UNSPECIFIED
     Route: 061
     Dates: start: 20080521
  3. ISONIAZID [Concomitant]
     Indication: ANTIBIOTIC PROPHYLAXIS
     Route: 048
     Dates: start: 20090305
  4. CANDESARTAN CILEXETIL [Concomitant]
     Indication: HYPERTENSION
     Route: 048
     Dates: start: 20001002
  5. ATORVASTATIN CALCIUM [Concomitant]
     Indication: HYPERTENSION
     Route: 048
     Dates: start: 20001002
  6. PREDNISOLONE [Concomitant]
     Indication: RHEUMATOID ARTHRITIS
     Route: 048
     Dates: start: 20071024
  7. OMEPRAZOLE [Concomitant]
     Indication: REFLUX OESOPHAGITIS
     Route: 048
     Dates: start: 20030401

REACTIONS (1)
  - SUDDEN HEARING LOSS [None]
